FAERS Safety Report 5640606-5 (Version None)
Quarter: 2008Q1

REPORT INFORMATION
  Report Type: 
  Country: None (occurrence: None)
  Receive Date: 20080227
  Receipt Date: 20080221
  Transmission Date: 20080703
  Serious: Yes (Life-Threatening, Hospitalization, Disabling, Other)
  Sender: FDA-Public Use
  Company Number: PHFR2008GB00966

PATIENT
  Sex: Female

DRUGS (4)
  1. CEPHALEXIN [Concomitant]
     Dosage: 250MG
     Route: 048
  2. NITROFURANTOIN [Concomitant]
     Dosage: 50MG
     Route: 048
  3. LEVOTHYROXINE SODIUM [Concomitant]
     Dosage: 100UG
     Route: 048
  4. TEGRETAL RETARD [Suspect]
     Indication: EPILEPSY
     Route: 048

REACTIONS (2)
  - CONVULSION [None]
  - DRUG INEFFECTIVE [None]
